FAERS Safety Report 5041545-3 (Version None)
Quarter: 2006Q2

REPORT INFORMATION
  Report Type: 
  Country: None (occurrence: None)
  Receive Date: 20060627
  Receipt Date: 20060607
  Transmission Date: 20061013
  Serious: Yes (Hospitalization, Other)
  Sender: FDA-Public Use
  Company Number: US200606002063

PATIENT
  Sex: Male
  Weight: 96.6 kg

DRUGS (4)
  1. HUMULIN N [Suspect]
     Indication: DIABETES MELLITUS
     Dosage: 48 U, 2/D
     Dates: start: 19960101
  2. THORAZINE [Concomitant]
  3. AMBIEN [Concomitant]
  4. IMIPRAMINE [Concomitant]

REACTIONS (19)
  - ABNORMAL BEHAVIOUR [None]
  - BLOOD GLUCOSE INCREASED [None]
  - CARDIAC DISORDER [None]
  - CHEST PAIN [None]
  - COLONIC POLYP [None]
  - DIABETIC COMPLICATION [None]
  - DIZZINESS [None]
  - FATIGUE [None]
  - GASTRIC ULCER HAEMORRHAGE [None]
  - HAEMATEMESIS [None]
  - HYPERTENSION [None]
  - NAIL BED BLEEDING [None]
  - NAIL INFECTION [None]
  - STRESS [None]
  - TOE AMPUTATION [None]
  - TREATMENT NONCOMPLIANCE [None]
  - TREMOR [None]
  - WALKING AID USER [None]
  - WEIGHT DECREASED [None]
